FAERS Safety Report 4597920-4 (Version None)
Quarter: 2005Q1

REPORT INFORMATION
  Report Type: 
  Country: None (occurrence: None)
  Receive Date: 20050301
  Receipt Date: 20050223
  Transmission Date: 20050727
  Serious: Yes (Death, Other)
  Sender: FDA-Public Use
  Company Number: 163-20785-03110535

PATIENT
  Age: 50 Year
  Sex: Male

DRUGS (1)
  1. THALOMID (THALIDOMIDE)(200 MILLIGRAM CAPSULE) [Suspect]
     Indication: METASTATIC RENAL CELL CARCINOMA
     Dosage: 800 MG, DAILY, ORAL
     Route: 048
     Dates: start: 20030115, end: 20030501

REACTIONS (4)
  - GASTROINTESTINAL MOTILITY DISORDER [None]
  - NEOPLASM GROWTH ACCELERATED [None]
  - OESOPHAGEAL DISORDER [None]
  - PARALYSIS [None]
